FAERS Safety Report 4642473-5 (Version None)
Quarter: 2005Q2

REPORT INFORMATION
  Report Type: 
  Country: None (occurrence: None)
  Receive Date: 20050420
  Receipt Date: 20050420
  Transmission Date: 20051028
  Serious: Yes (Hospitalization)
  Sender: FDA-Public Use
  Company Number: None

PATIENT
  Age: 35 Year
  Sex: Female
  Weight: 97.5234 kg

DRUGS (2)
  1. PAXIL CR [Suspect]
     Indication: ANXIETY
     Dosage: 1 DAY  ORAL
     Route: 048
     Dates: start: 20040701, end: 20050409
  2. PAXIL CR [Suspect]
     Indication: DEPRESSION
     Dosage: 1 DAY  ORAL
     Route: 048
     Dates: start: 20040701, end: 20050409

REACTIONS (9)
  - APHASIA [None]
  - BLOOD PRESSURE INCREASED [None]
  - DIZZINESS [None]
  - DRUG WITHDRAWAL SYNDROME [None]
  - FEAR [None]
  - MALAISE [None]
  - MENTAL DISORDER [None]
  - PARAESTHESIA [None]
  - TREMOR [None]
